FAERS Safety Report 5565532-1 (Version None)
Quarter: 2007Q4

REPORT INFORMATION
  Report Type: 
  Country: None (occurrence: None)
  Receive Date: 20071218
  Receipt Date: 20071206
  Transmission Date: 20080405
  Serious: Yes (Other)
  Sender: FDA-Public Use
  Company Number: US-PFIZER INC-2007103422

PATIENT
  Sex: Female

DRUGS (6)
  1. SOLU-MEDROL [Suspect]
     Indication: KIDNEY TRANSPLANT REJECTION
     Route: 042
  2. LIPITOR [Concomitant]
  3. NOVOLOG [Concomitant]
  4. LANTUS [Concomitant]
  5. CELLCEPT [Concomitant]
  6. PROGRAF [Concomitant]

REACTIONS (9)
  - BK VIRUS INFECTION [None]
  - COUGH [None]
  - DYSPNOEA [None]
  - HAEMATEMESIS [None]
  - HAEMOPTYSIS [None]
  - HYPERTENSION [None]
  - NAUSEA [None]
  - PRURITUS [None]
  - URTICARIA [None]
